FAERS Safety Report 8542059-6 (Version None)
Quarter: 2012Q3

REPORT INFORMATION
  Report Type: 
  Country: None (occurrence: None)
  Receive Date: 20120726
  Receipt Date: 20120723
  Transmission Date: 20120928
  Serious: Yes (Hospitalization, Other)
  Sender: FDA-Public Use
  Company Number: US-TEVA-350154USA

PATIENT
  Age: 21 Year
  Sex: Male

DRUGS (1)
  1. ISONIAZID [Suspect]
     Indication: LATENT TUBERCULOSIS
     Dosage: TAKEN FOR MANY MONTHS
     Route: 065

REACTIONS (1)
  - RHABDOMYOLYSIS [None]
